FAERS Safety Report 10530911 (Version 1)
Quarter: 2014Q4

REPORT INFORMATION
  Report Type: Report from Study
  Country: US (occurrence: US)
  Receive Date: 20141021
  Receipt Date: 20141021
  Transmission Date: 20150528
  Serious: Yes (Other)
  Sender: FDA-Public Use
  Company Number: US-GLAXOSMITHKLINE-US2014GSK005201

PATIENT
  Age: 66 Year
  Sex: Male

DRUGS (21)
  1. ALPRAZOLAM. [Concomitant]
     Active Substance: ALPRAZOLAM
  2. CLONAZEPAM. [Concomitant]
     Active Substance: CLONAZEPAM
  3. ESZOPICLONE. [Concomitant]
     Active Substance: ESZOPICLONE
  4. OXYCODONE [Suspect]
     Active Substance: OXYCODONE
  5. HYDROMORPHONE [Suspect]
     Active Substance: HYDROMORPHONE
     Dosage: 17 MG, UNK
  6. MORPHINE [Suspect]
     Active Substance: MORPHINE
     Indication: PAIN
     Dosage: UNK
  7. ESZOPICLONE. [Concomitant]
     Active Substance: ESZOPICLONE
  8. ELETRIPTAN [Concomitant]
     Active Substance: ELETRIPTAN
  9. FROVATRIPTAN [Concomitant]
     Active Substance: FROVATRIPTAN
  10. PROMETHAZINE [Concomitant]
     Active Substance: PROMETHAZINE\PROMETHAZINE HYDROCHLORIDE
  11. BACLOFEN. [Concomitant]
     Active Substance: BACLOFEN
     Dosage: 400 UG, UNK
  12. BUPIVACAINE [Concomitant]
     Active Substance: BUPIVACAINE
     Dosage: 5.3 MG, UNK
  13. FENTANYL. [Suspect]
     Active Substance: FENTANYL
  14. SUFENTANIL [Suspect]
     Active Substance: SUFENTANIL
     Dosage: 7 UG, UNK
  15. ZICONOTIDE [Suspect]
     Active Substance: ZICONOTIDE
     Dosage: 25 UNK, UNK
  16. DIAZEPAM. [Concomitant]
     Active Substance: DIAZEPAM
  17. NAPROXEN. [Concomitant]
     Active Substance: NAPROXEN
  18. BACLOFEN. [Concomitant]
     Active Substance: BACLOFEN
  19. CELECOXIB. [Concomitant]
     Active Substance: CELECOXIB
  20. ACETAMINOPHEN + CAFFEINE [Suspect]
     Active Substance: ACETAMINOPHEN\CAFFEINE
  21. CLONIDINE. [Concomitant]
     Active Substance: CLONIDINE
     Dosage: 133 UG, UNK

REACTIONS (17)
  - Impaired gastric emptying [Unknown]
  - Nausea [Unknown]
  - Headache [Unknown]
  - Dry mouth [Unknown]
  - Muscle spasms [Unknown]
  - Urinary retention [Unknown]
  - Gait disturbance [Recovering/Resolving]
  - Urinary tract infection [Unknown]
  - Hyperaesthesia [Recovering/Resolving]
  - Vomiting [Unknown]
  - Syncope [Unknown]
  - Insomnia [Unknown]
  - Constipation [Unknown]
  - Sleep disorder [Unknown]
  - Confusional state [Unknown]
  - Hypotension [Unknown]
  - Mental status changes [Unknown]
